APPROVED DRUG PRODUCT: SUSTIVA
Active Ingredient: EFAVIRENZ
Strength: 600MG **Federal Register determination that product was not discontinued or withdrawn for safety or effectiveness reasons**
Dosage Form/Route: TABLET;ORAL
Application: N021360 | Product #002
Applicant: BRISTOL MYERS SQUIBB CO
Approved: Feb 1, 2002 | RLD: Yes | RS: No | Type: DISCN